FAERS Safety Report 16814003 (Version 4)
Quarter: 2020Q4

REPORT INFORMATION
  Report Type: Spontaneous
  Country: US (occurrence: US)
  Receive Date: 20190917
  Receipt Date: 20201023
  Transmission Date: 20210113
  Serious: No
  Sender: FDA-Public Use
  Company Number: US-PHARMING-PHAUS2019000459

PATIENT

DRUGS (2)
  1. RUCONEST [Suspect]
     Active Substance: HUMAN C1-ESTERASE INHIBITOR
     Indication: HEREDITARY ANGIOEDEMA
     Dosage: 42000 IU INTERNATIONAL UNIT(S), AS NEEDED OR EVERY 3 DAYS
     Route: 042
     Dates: start: 201801
  2. RUCONEST [Suspect]
     Active Substance: HUMAN C1-ESTERASE INHIBITOR
     Dosage: UNK
     Route: 042
     Dates: start: 201801

REACTIONS (4)
  - Intentional product use issue [Unknown]
  - Overdose [Unknown]
  - Intervertebral disc protrusion [Unknown]
  - Back pain [Unknown]
